FAERS Safety Report 12114033 (Version 2)
Quarter: 2016Q1

REPORT INFORMATION
  Report Type: Spontaneous
  Country: US (occurrence: US)
  Receive Date: 20160225
  Receipt Date: 20160315
  Transmission Date: 20160526
  Serious: No
  Sender: FDA-Public Use
  Company Number: US-PFIZER INC-2016110879

PATIENT
  Age: 65 Year
  Sex: Female
  Weight: 54 kg

DRUGS (2)
  1. LORAZEPAM. [Concomitant]
     Active Substance: LORAZEPAM
     Dosage: 1 MG, UNK
  2. LYRICA [Suspect]
     Active Substance: PREGABALIN
     Indication: TOXIC NEUROPATHY
     Dosage: 50 MG, ONCE A DAY AS NEEDED
     Route: 048
     Dates: start: 201509

REACTIONS (9)
  - Product use issue [Unknown]
  - Speech disorder [Unknown]
  - Cognitive disorder [Unknown]
  - Joint swelling [Recovered/Resolved]
  - Inappropriate schedule of drug administration [Unknown]
  - Feeling abnormal [Unknown]
  - Activities of daily living impaired [Unknown]
  - Somnolence [Unknown]
  - Drug hypersensitivity [Unknown]

NARRATIVE: CASE EVENT DATE: 201509
